FAERS Safety Report 15265151 (Version 2)
Quarter: 2018Q3

REPORT INFORMATION
  Report Type: Spontaneous
  Country: US (occurrence: US)
  Receive Date: 20180810
  Receipt Date: 20180914
  Transmission Date: 20181010
  Serious: Yes (Life-Threatening, Hospitalization, Other)
  Sender: FDA-Public Use
  Company Number: US-SA-2018SA215456

PATIENT
  Age: 59 Year
  Sex: Male

DRUGS (1)
  1. SALICYLIC ACID. [Suspect]
     Active Substance: SALICYLIC ACID
     Route: 048

REACTIONS (5)
  - Metabolic acidosis [Recovered/Resolved]
  - Toxicity to various agents [Recovered/Resolved]
  - Blood creatinine increased [Unknown]
  - Mental status changes [Recovered/Resolved]
  - Tachypnoea [Recovered/Resolved]
